FAERS Safety Report 11185262 (Version 1)
Quarter: 2015Q2

REPORT INFORMATION
  Report Type: Spontaneous
  Country: US (occurrence: US)
  Receive Date: 20150612
  Receipt Date: 20150612
  Transmission Date: 20150821
  Serious: No
  Sender: FDA-Public Use
  Company Number: US-BAYER-2015-319558

PATIENT
  Age: 3 Year
  Sex: Male
  Weight: 17.23 kg

DRUGS (2)
  1. CLARITIN [Suspect]
     Active Substance: LORATADINE
     Dosage: 1 TEASPOON, QD
     Route: 048
  2. CLARITIN [Suspect]
     Active Substance: LORATADINE
     Dosage: UNK, ONCE
     Route: 048
     Dates: start: 20150605, end: 20150605

REACTIONS (3)
  - Failure of child resistant mechanism for pharmaceutical product [None]
  - Expired product administered [None]
  - Accidental exposure to product by child [Unknown]

NARRATIVE: CASE EVENT DATE: 20150605
